FAERS Safety Report 10144551 (Version 1)
Quarter: 2014Q2

REPORT INFORMATION
  Report Type: Spontaneous
  Country: US (occurrence: US)
  Receive Date: 20140430
  Receipt Date: 20140430
  Transmission Date: 20141212
  Serious: Yes (Hospitalization)
  Sender: FDA-Public Use
  Company Number: US-SANOFI-AVENTIS-2013SA041732

PATIENT
  Age: 76 Year
  Sex: Female
  Weight: 117 kg

DRUGS (6)
  1. LOVENOX [Suspect]
     Indication: THROMBOSIS
     Route: 058
     Dates: start: 20130220, end: 20130514
  2. BENAZEPRIL [Concomitant]
     Indication: BLOOD PRESSURE
  3. METFORMIN [Concomitant]
     Indication: DIABETES MELLITUS
     Dosage: DOSE: 500 MICROGRAM
  4. AMLODIPINE [Concomitant]
     Indication: BLOOD PRESSURE
  5. JAXZAL [Concomitant]
     Indication: BLOOD PRESSURE
  6. METOPROLOL [Concomitant]
     Indication: BLOOD PRESSURE

REACTIONS (4)
  - Thrombosis [Not Recovered/Not Resolved]
  - Nodule [Unknown]
  - Infection [Unknown]
  - Decreased appetite [Unknown]
